FAERS Safety Report 5879585-4 (Version None)
Quarter: 2008Q3

REPORT INFORMATION
  Report Type: 
  Country: None (occurrence: None)
  Receive Date: 20080912
  Receipt Date: 20080905
  Transmission Date: 20090109
  Serious: Yes (Hospitalization)
  Sender: FDA-Public Use
  Company Number: CH-JNJFOC-20080901063

PATIENT
  Age: 59 Year
  Sex: Female
  Weight: 80 kg

DRUGS (8)
  1. RISPERDAL [Suspect]
     Indication: AGITATION
     Route: 048
  2. RISPERDAL [Suspect]
     Indication: RESTLESSNESS
     Route: 048
  3. LITHIOFOR [Suspect]
     Route: 048
  4. LITHIOFOR [Suspect]
     Route: 048
  5. LITHIOFOR [Suspect]
     Route: 048
  6. LITHIOFOR [Suspect]
     Indication: BIPOLAR DISORDER
     Route: 048
  7. ATACAND [Concomitant]
     Indication: ESSENTIAL HYPERTENSION
     Route: 048
  8. TEMESTA [Concomitant]
     Route: 065

REACTIONS (11)
  - ATAXIA [None]
  - CYTOGENETIC ABNORMALITY [None]
  - DRUG LEVEL DECREASED [None]
  - DYSARTHRIA [None]
  - EXTRAPYRAMIDAL DISORDER [None]
  - LEUKOENCEPHALOPATHY [None]
  - MICROANGIOPATHY [None]
  - OVERDOSE [None]
  - PSYCHOMOTOR HYPERACTIVITY [None]
  - RENAL FAILURE ACUTE [None]
  - THERAPEUTIC AGENT TOXICITY [None]
